FAERS Safety Report 7212272-9 (Version None)
Quarter: 2010Q4

REPORT INFORMATION
  Report Type: 
  Country: None (occurrence: None)
  Receive Date: 20101229
  Receipt Date: 20101214
  Transmission Date: 20110411
  Serious: Yes (Other)
  Sender: FDA-Public Use
  Company Number: 012412

PATIENT
  Age: 5 Year
  Sex: Male

DRUGS (4)
  1. BUSULFEX [Suspect]
     Indication: STEM CELL TRANSPLANT
  2. CYCLOSPORINE [Concomitant]
  3. MELPHALAN [Concomitant]
  4. METHYLPREDNISOLONE [Concomitant]

REACTIONS (5)
  - CONVULSION [None]
  - DEVELOPMENTAL DELAY [None]
  - INAPPROPRIATE ANTIDIURETIC HORMONE SECRETION [None]
  - MUSCLE RIGIDITY [None]
  - NERVOUS SYSTEM DISORDER [None]
